FAERS Safety Report 12950573 (Version 3)
Quarter: 2017Q1

REPORT INFORMATION
  Report Type: Spontaneous
  Country: US (occurrence: US)
  Receive Date: 20161117
  Receipt Date: 20170314
  Transmission Date: 20170428
  Serious: No
  Sender: FDA-Public Use
  Company Number: US-PFIZER INC-2016529159

PATIENT
  Age: 62 Year
  Sex: Male

DRUGS (2)
  1. SUTENT [Suspect]
     Active Substance: SUNITINIB MALATE
     Dosage: 50 MG, CYCLIC (28 DAYS ON/14 DAYS OFF)
     Dates: start: 20161004
  2. SUTENT [Suspect]
     Active Substance: SUNITINIB MALATE
     Indication: GASTROINTESTINAL STROMAL TUMOUR
     Dosage: 50 MG, DAILY
     Dates: start: 20160930

REACTIONS (9)
  - Pain in jaw [Recovered/Resolved]
  - Dysgeusia [Recovered/Resolved]
  - Ageusia [Recovered/Resolved]
  - Abdominal pain lower [Unknown]
  - Glossodynia [Recovered/Resolved]
  - Back pain [Recovered/Resolved]
  - Abscess [Recovered/Resolved]
  - Pain in extremity [Recovered/Resolved]
  - Tongue discomfort [Recovered/Resolved]

NARRATIVE: CASE EVENT DATE: 20160930
